FAERS Safety Report 4975655-3 (Version None)
Quarter: 2006Q2

REPORT INFORMATION
  Report Type: 
  Country: None (occurrence: None)
  Receive Date: 20060407
  Receipt Date: 20060327
  Transmission Date: 20061013
  Serious: Yes (Hospitalization, Other)
  Sender: FDA-Public Use
  Company Number: 200611001BCC

PATIENT
  Age: 78 Year
  Sex: Female
  Weight: 47.1741 kg

DRUGS (2)
  1. ALEVE [Suspect]
     Indication: ARTHRALGIA
     Dosage: 220 MG, QD, ORAL, 440 MG, TOTAL DAILY, ORAL
     Route: 048
     Dates: start: 20000101
  2. ALEVE [Suspect]
     Indication: ARTHRALGIA
     Dosage: 220 MG, QD, ORAL, 440 MG, TOTAL DAILY, ORAL
     Route: 048
     Dates: start: 20050101

REACTIONS (7)
  - BLOOD PRESSURE ABNORMAL [None]
  - BLOOD PRESSURE INCREASED [None]
  - DIZZINESS [None]
  - DRUG INEFFECTIVE [None]
  - FEELING ABNORMAL [None]
  - SPEECH DISORDER [None]
  - VISION BLURRED [None]
